FAERS Safety Report 4281054-2 (Version None)
Quarter: 2004Q1

REPORT INFORMATION
  Report Type: 
  Country: None (occurrence: None)
  Receive Date: 20040123
  Receipt Date: 20030827
  Transmission Date: 20041129
  Serious: Yes (Other)
  Sender: FDA-Public Use
  Company Number: HQWYE404228AUG03

PATIENT
  Age: 59 Year
  Sex: Female
  Weight: 113.5 kg

DRUGS (6)
  1. CORDARONE [Suspect]
     Indication: HEART RATE IRREGULAR
     Dosage: SEE IMAGE
     Route: 048
     Dates: start: 20010101, end: 20010101
  2. CORDARONE [Suspect]
     Indication: HEART RATE IRREGULAR
     Dosage: SEE IMAGE
     Route: 048
     Dates: start: 20010101, end: 20010101
  3. CORDARONE [Suspect]
     Indication: HEART RATE IRREGULAR
     Dosage: SEE IMAGE
     Route: 048
     Dates: start: 20010101
  4. CELEXA [Concomitant]
  5. ANTIHYPERTENSIVE AGENT (ANTIHYPERTENSIVE AGENT) [Concomitant]
  6. LASIX [Concomitant]

REACTIONS (1)
  - OPTIC NEUROPATHY [None]
